FAERS Safety Report 9099589 (Version 1)
Quarter: 2013Q1

REPORT INFORMATION
  Report Type: Spontaneous
  Country: US (occurrence: US)
  Receive Date: 20130214
  Receipt Date: 20130214
  Transmission Date: 20140127
  Serious: Yes (Other)
  Sender: FDA-Public Use
  Company Number: US-TARO-2013P1001961

PATIENT
  Age: 85 Year
  Sex: Female
  Weight: 72.58 kg

DRUGS (11)
  1. TRIAMCINOLONE ACETONIDE [Suspect]
     Route: 061
     Dates: start: 2012, end: 2012
  2. DIOVAN [Concomitant]
  3. METOPROLOL [Concomitant]
  4. LEVOTHYROXINE [Concomitant]
  5. FUROSEMIDE [Concomitant]
  6. POTASSIUM [Concomitant]
  7. CALCIUM [Concomitant]
  8. SELENIUM [Concomitant]
  9. BIOTIN [Concomitant]
  10. VITAMIN D3 [Concomitant]
  11. ASPIRIN [Concomitant]

REACTIONS (7)
  - Application site discolouration [Not Recovered/Not Resolved]
  - Erythema [Not Recovered/Not Resolved]
  - Rash [Not Recovered/Not Resolved]
  - Glaucoma [Not Recovered/Not Resolved]
  - Eye infection [Recovered/Resolved]
  - Pruritus [Not Recovered/Not Resolved]
  - Skin exfoliation [Not Recovered/Not Resolved]
